FAERS Safety Report 25440121 (Version 1)
Quarter: 2025Q2

REPORT INFORMATION
  Report Type: Spontaneous
  Country: US (occurrence: US)
  Receive Date: 20250616
  Receipt Date: 20250616
  Transmission Date: 20250716
  Serious: Yes (Other)
  Sender: PFIZER
  Company Number: US-PFIZER INC-202500120924

PATIENT
  Age: 87 Year
  Sex: Male

DRUGS (1)
  1. VYNDAMAX [Suspect]
     Active Substance: TAFAMIDIS
     Dosage: TAKE 1 CAPSULE (61MG TOTAL) BY MOUTH DAILY
     Route: 048

REACTIONS (3)
  - Amyloidosis [Unknown]
  - Dyspnoea [Not Recovered/Not Resolved]
  - Product dose omission issue [Unknown]
